FAERS Safety Report 5688065-0 (Version None)
Quarter: 2008Q1

REPORT INFORMATION
  Report Type: 
  Country: None (occurrence: None)
  Receive Date: 20080327
  Receipt Date: 20080318
  Transmission Date: 20080703
  Serious: Yes (Hospitalization)
  Sender: FDA-Public Use
  Company Number: 2008BI007441

PATIENT
  Age: 61 Year
  Sex: Female

DRUGS (1)
  1. AVONEX [Suspect]
     Indication: MULTIPLE SCLEROSIS
     Dosage: 30 UG; QW; IM
     Route: 030
     Dates: start: 20040504

REACTIONS (4)
  - INTERVERTEBRAL DISC DEGENERATION [None]
  - INTRACRANIAL HYPOTENSION [None]
  - SPINAL COLUMN STENOSIS [None]
  - SPINAL CORD HERNIATION [None]
